FAERS Safety Report 11144321 (Version 2)
Quarter: 2015Q2

REPORT INFORMATION
  Report Type: Spontaneous
  Country: US (occurrence: US)
  Receive Date: 20150526
  Receipt Date: 20150608
  Transmission Date: 20150821
  Serious: No
  Sender: FDA-Public Use
  Company Number: US-PFIZER INC-2015161828

PATIENT
  Age: 53 Year
  Sex: Male
  Weight: 141 kg

DRUGS (1)
  1. ALAVERT ALLERGY [Suspect]
     Active Substance: LORATADINE
     Indication: SEASONAL ALLERGY
     Dosage: 20 MG, ONCE A DAY
     Dates: start: 20150414, end: 2015

REACTIONS (3)
  - Salivary hypersecretion [Recovered/Resolved]
  - Dysgeusia [Recovered/Resolved]
  - Saliva altered [Recovered/Resolved]

NARRATIVE: CASE EVENT DATE: 2015
